FAERS Safety Report 6332177 (Version 1)
Quarter: 2020Q3

REPORT INFORMATION
  Report Type: Spontaneous
  Country: CH (occurrence: None)
  Receive Date: 20070529
  Receipt Date: 20070529
  Transmission Date: 20201104
  Serious: Yes (Hospitalization)
  Sender: FDA-Public Use
  Company Number: B0472130A

PATIENT
  Age: 41 Year
  Sex: Male

DRUGS (4)
  1. OPIUM. [Suspect]
     Active Substance: OPIUM
     Dosage: INHALED
     Route: 055
  2. VENLAFAXINE HYDROCHLORIDE. [Suspect]
     Active Substance: VENLAFAXINE HYDROCHLORIDE
     Indication: DEPRESSION
  3. VALPROATE SODIUM (FORMULATION UNKNOWN) (VALPROATE SODIUM) [Suspect]
     Active Substance: VALPROATE SODIUM
     Indication: DEPRESSION
  4. ESKALITH [Suspect]
     Active Substance: LITHIUM CARBONATE
     Indication: DEPRESSION

REACTIONS (21)
  - Serotonin syndrome [None]
  - Euphoric mood [None]
  - Insomnia [None]
  - Disorientation [None]
  - Tremor [None]
  - Drug abuser [None]
  - Aggression [None]
  - Psychomotor hyperactivity [None]
  - Ideas of reference [None]
  - Mania [None]
  - Irritability [None]
  - Flight of ideas [None]
  - Drug level decreased [None]
  - Diarrhoea [None]
  - Grandiosity [None]
  - Logorrhoea [None]
  - Persecutory delusion [None]
  - Hyperreflexia [None]
  - Restlessness [None]
  - Hyperthermia [None]
  - Hyperhidrosis [None]
